FAERS Safety Report 5044755-4 (Version None)
Quarter: 2006Q3

REPORT INFORMATION
  Report Type: 
  Country: None (occurrence: None)
  Receive Date: 20060707
  Receipt Date: 20060628
  Transmission Date: 20061208
  Serious: Yes (Other)
  Sender: FDA-Public Use
  Company Number: FR-JNJFOC-20060505455

PATIENT
  Sex: Female
  Weight: 69 kg

DRUGS (7)
  1. REMINYL [Suspect]
     Indication: DEMENTIA ALZHEIMER'S TYPE
     Route: 048
  2. PLAVIX [Concomitant]
     Indication: CEREBROVASCULAR ACCIDENT
     Route: 048
  3. SECTRAL [Concomitant]
     Indication: HYPERTENSION
     Route: 048
  4. KENZEN [Concomitant]
     Indication: HYPERTENSION
     Route: 048
  5. FRACTAL LP [Concomitant]
     Indication: CEREBROVASCULAR ACCIDENT
  6. NOVONORM [Concomitant]
     Indication: DIABETES MELLITUS
  7. TEMESTA [Concomitant]
     Indication: INSOMNIA

REACTIONS (1)
  - SKIN EXFOLIATION [None]
